FAERS Safety Report 6367362-X (Version None)
Quarter: 2009Q3

REPORT INFORMATION
  Report Type: 
  Country: None (occurrence: None)
  Receive Date: 20090915
  Receipt Date: 20070718
  Transmission Date: 20100115
  Serious: No
  Sender: FDA-Public Use
  Company Number: 8051763

PATIENT

DRUGS (1)
  1. KEPPRA [Suspect]
     Dosage: IV
     Route: 042

REACTIONS (1)
  - NO ADVERSE EVENT [None]
